FAERS Safety Report 4285087-1 (Version None)
Quarter: 2004Q1

REPORT INFORMATION
  Report Type: 
  Country: None (occurrence: None)
  Receive Date: 20040202
  Receipt Date: 20040123
  Transmission Date: 20041129
  Serious: Yes (Other)
  Sender: FDA-Public Use
  Company Number: 2003-11-2124

PATIENT
  Age: 50 Year
  Sex: Male

DRUGS (2)
  1. PEG-INTRON [Suspect]
     Dosage: SUBCUTANEOUS
     Route: 058
     Dates: start: 20020209, end: 20030101
  2. REBETOL [Suspect]
     Dosage: 1000 MG QD ORAL
     Route: 048
     Dates: start: 20020209, end: 20030101

REACTIONS (25)
  - ABDOMINAL PAIN [None]
  - AGEUSIA [None]
  - ANOREXIA [None]
  - ANXIETY [None]
  - APTYALISM [None]
  - COUGH [None]
  - DENTAL CARIES [None]
  - DEPRESSION [None]
  - DIARRHOEA [None]
  - DIZZINESS POSTURAL [None]
  - DRY MOUTH [None]
  - DYSARTHRIA [None]
  - DYSPEPSIA [None]
  - FATIGUE [None]
  - HEPATITIS C [None]
  - INJECTION SITE IRRITATION [None]
  - INSOMNIA [None]
  - LIBIDO DECREASED [None]
  - MYALGIA [None]
  - PYREXIA [None]
  - SKIN LESION [None]
  - VISUAL DISTURBANCE [None]
  - VOMITING [None]
  - WEIGHT DECREASED [None]
  - WOUND [None]
